FAERS Safety Report 9533144 (Version 4)
Quarter: 2014Q4

REPORT INFORMATION
  Report Type: Spontaneous
  Country: US (occurrence: None)
  Receive Date: 20130916
  Receipt Date: 20141030
  Transmission Date: 20150529
  Serious: No
  Sender: FDA-Public Use
  Company Number: 2013-US-000645

PATIENT
  Age: 44 Year
  Sex: Female

DRUGS (5)
  1. XYREM [Suspect]
     Active Substance: SODIUM OXYBATE
     Indication: CATAPLEXY
     Route: 048
     Dates: start: 20130711, end: 201308
  2. GABAPENTIN (GABAPENTIN) [Concomitant]
     Active Substance: GABAPENTIN
  3. LEVAQUIN [Concomitant]
     Active Substance: LEVOFLOXACIN
  4. TRAMADOL (TRAMADOL HYDROCHLORIDE) [Concomitant]
     Active Substance: TRAMADOL HYDROCHLORIDE
  5. XYREM [Suspect]
     Active Substance: SODIUM OXYBATE
     Indication: NARCOLEPSY
     Route: 048
     Dates: start: 20130711, end: 201308

REACTIONS (9)
  - Muscle spasms [None]
  - Anxiety [None]
  - Diarrhoea [None]
  - Paraesthesia [None]
  - Autonomic nervous system imbalance [None]
  - Feeling of body temperature change [None]
  - Panic attack [None]
  - Nausea [None]
  - Dizziness [None]

NARRATIVE: CASE EVENT DATE: 2013
